FAERS Safety Report 11220533 (Version 3)
Quarter: 2015Q4

REPORT INFORMATION
  Report Type: Spontaneous
  Country: CA (occurrence: CA)
  Receive Date: 20150626
  Receipt Date: 20151110
  Transmission Date: 20160304
  Serious: Yes (Other)
  Sender: FDA-Public Use
  Company Number: CA-ROCHE-1597297

PATIENT
  Age: 53 Year
  Sex: Male

DRUGS (9)
  1. XOLAIR [Suspect]
     Active Substance: OMALIZUMAB
     Route: 058
     Dates: start: 20150810
  2. XOLAIR [Suspect]
     Active Substance: OMALIZUMAB
     Dosage: TREATMENT TO BE HELD OFF FOR 1 MONTH (UNKNOWN DATES)
     Route: 058
     Dates: start: 20150604
  3. XOLAIR [Suspect]
     Active Substance: OMALIZUMAB
     Route: 058
     Dates: start: 20150521
  4. ONBREZ BREEZHALER [Suspect]
     Active Substance: INDACATEROL
     Indication: PRODUCT USED FOR UNKNOWN INDICATION
     Dosage: TREATMENT TO BE HELD OFF FOR 1 MONTH (UNKNOWN DATES)
     Route: 055
  5. QVAR [Concomitant]
     Active Substance: BECLOMETHASONE DIPROPIONATE
  6. PREDNISONE. [Concomitant]
     Active Substance: PREDNISONE
  7. CELEXA [Concomitant]
     Active Substance: CITALOPRAM HYDROBROMIDE
  8. XOLAIR [Suspect]
     Active Substance: OMALIZUMAB
     Indication: ASTHMA
     Route: 058
     Dates: start: 20150507
  9. XOLAIR [Suspect]
     Active Substance: OMALIZUMAB
     Route: 058
     Dates: start: 20150908, end: 20150908

REACTIONS (12)
  - Drug ineffective [Unknown]
  - Diarrhoea [Recovered/Resolved]
  - Dyspnoea [Unknown]
  - Myalgia [Unknown]
  - Nasopharyngitis [Recovered/Resolved]
  - Blood pressure decreased [Unknown]
  - Abdominal discomfort [Recovered/Resolved]
  - Forced expiratory volume decreased [Unknown]
  - Heart rate increased [Unknown]
  - Headache [Not Recovered/Not Resolved]
  - Feeling abnormal [Unknown]
  - Vomiting [Recovered/Resolved]

NARRATIVE: CASE EVENT DATE: 20150507
